FAERS Safety Report 17268446 (Version 1)
Quarter: 2020Q1

REPORT INFORMATION
  Report Type: Spontaneous
  Country: US (occurrence: US)
  Receive Date: 20200114
  Receipt Date: 20200114
  Transmission Date: 20200409
  Serious: Yes (Disabling)
  Sender: FDA-Public Use
  Company Number: None

PATIENT
  Age: 72 Year
  Sex: Female
  Weight: 61.65 kg

DRUGS (11)
  1. HYOCYAMINE [Concomitant]
  2. ATENONOL [Concomitant]
  3. TRAZODONE [Concomitant]
     Active Substance: TRAZODONE HYDROCHLORIDE
  4. PROBIOTIC 10 [Concomitant]
     Active Substance: DIETARY SUPPLEMENT\PROBIOTICS
  5. ASPIRIN. [Concomitant]
     Active Substance: ASPIRIN
  6. CLARITIN-D 24 HOUR [Suspect]
     Active Substance: LORATADINE\PSEUDOEPHEDRINE SULFATE
     Indication: MULTIPLE ALLERGIES
     Dosage: ?          OTHER STRENGTH:? EXT RELEASE;QUANTITY:1 TABLET(S);?
     Route: 048
  7. VITAMIN B-COMPLEX [Concomitant]
     Active Substance: DEXPANTHENOL\NIACINAMIDE\PYRIDOXINE HYDROCHLORIDE\RIBOFLAVIN 5^-PHOSPHATE SODIUM\THIAMINE HYDROCHLORIDE
  8. VITAMIN C [Concomitant]
     Active Substance: ASCORBIC ACID
  9. VIT D [Concomitant]
     Active Substance: VITAMIN D NOS
  10. ECHINCEA [Concomitant]
  11. MULTI-VITAMIN [Concomitant]
     Active Substance: .ALPHA.-TOCOPHEROL ACETATE, DL-\ASCORBIC ACID\CYANOCOBALAMIN\FLUORIDE ION\FOLIC ACID\NIACIN\PYRIDOXINE\RIBOFLAVIN\THIAMINE\VITAMIN A\VITAMIN D

REACTIONS (7)
  - Back pain [None]
  - Product dispensing issue [None]
  - Insurance issue [None]
  - Nasal congestion [None]
  - Productive cough [None]
  - Depressed mood [None]
  - Dyspnoea [None]

NARRATIVE: CASE EVENT DATE: 20200107
